FAERS Safety Report 5399972-0 (Version None)
Quarter: 2007Q3

REPORT INFORMATION
  Report Type: 
  Country: None (occurrence: None)
  Receive Date: 20070730
  Receipt Date: 20070716
  Transmission Date: 20080115
  Serious: Yes (Death)
  Sender: FDA-Public Use
  Company Number: FR-BAYER-200710441BFR

PATIENT
  Age: 64 Year
  Sex: Male

DRUGS (14)
  1. CIPROFLOXACIN HCL [Suspect]
     Indication: PNEUMONIA
     Dosage: TOTAL DAILY DOSE: 1 G  UNIT DOSE: 500 MG
     Route: 048
     Dates: start: 20061226, end: 20061228
  2. EQUANIL [Suspect]
     Indication: UNEVALUABLE EVENT
     Dosage: TOTAL DAILY DOSE: 250 MG  UNIT DOSE: 250 MG
     Route: 048
     Dates: start: 20061227, end: 20061228
  3. ACUPAN [Suspect]
     Indication: UNEVALUABLE EVENT
     Dosage: TOTAL DAILY DOSE: 60 MG  UNIT DOSE: 20 MG
     Route: 042
     Dates: start: 20061224, end: 20061228
  4. SOLU-MEDROL [Suspect]
     Indication: UNEVALUABLE EVENT
     Dosage: TOTAL DAILY DOSE: 60 MG  UNIT DOSE: 60 MG
     Route: 042
     Dates: start: 20061222, end: 20061228
  5. ELISOR [Concomitant]
     Indication: UNEVALUABLE EVENT
     Dates: start: 20061222, end: 20061228
  6. EZETROL [Concomitant]
     Indication: UNEVALUABLE EVENT
     Dates: start: 20061222, end: 20061228
  7. OMEPRAZOLE [Concomitant]
     Indication: UNEVALUABLE EVENT
     Dates: start: 20061222, end: 20061228
  8. PERFALGAN [Concomitant]
     Indication: UNEVALUABLE EVENT
     Dates: start: 20061222, end: 20061228
  9. ATROVENT [Concomitant]
     Indication: UNEVALUABLE EVENT
     Dates: start: 20061222, end: 20061228
  10. VENTOLIN [Concomitant]
     Indication: UNEVALUABLE EVENT
     Dates: start: 20061222, end: 20061228
  11. TAZOCILLINE [Concomitant]
     Indication: UNEVALUABLE EVENT
     Dates: start: 20061226, end: 20061228
  12. SURBRONC [Concomitant]
     Indication: UNEVALUABLE EVENT
     Dates: start: 20061227, end: 20061228
  13. FLIXOTIDE DISKUS [Concomitant]
     Indication: UNEVALUABLE EVENT
     Dates: start: 20061227, end: 20061228
  14. SPIRIVA [Concomitant]
     Indication: UNEVALUABLE EVENT
     Dates: start: 20061227, end: 20061228

REACTIONS (1)
  - COMPLETED SUICIDE [None]
